FAERS Safety Report 5385937-1 (Version None)
Quarter: 2007Q3

REPORT INFORMATION
  Report Type: 
  Country: None (occurrence: None)
  Receive Date: 20070710
  Receipt Date: 20070626
  Transmission Date: 20080115
  Serious: Yes (Death, Hospitalization)
  Sender: FDA-Public Use
  Company Number: GXKR2007AU05443

PATIENT
  Age: 65 Year
  Sex: Female

DRUGS (3)
  1. METHOTREXATE [Suspect]
     Indication: RHEUMATOID ARTHRITIS
     Dosage: 7.5 QW
  2. PREDNISONE [Suspect]
     Indication: RHEUMATOID ARTHRITIS
     Dosage: 10 MG, QD
  3. ADALIMUMAB (ADALIMUMAB) [Suspect]
     Indication: RHEUMATOID ARTHRITIS
     Dosage: 40 MG, BIW, SUBCUTANEOUS
     Route: 058

REACTIONS (24)
  - ACUTE SINUSITIS [None]
  - BRAIN ABSCESS [None]
  - CEREBRAL ARTERY OCCLUSION [None]
  - CEREBRAL INFARCTION [None]
  - ENCEPHALITIS [None]
  - ERYTHEMA OF EYELID [None]
  - EXOPHTHALMOS [None]
  - EYE PAIN [None]
  - EYELID PTOSIS [None]
  - HEADACHE [None]
  - HYPOAESTHESIA [None]
  - ISCHAEMIA [None]
  - MUCORMYCOSIS [None]
  - OCULAR HYPERAEMIA [None]
  - OPHTHALMOPLEGIA [None]
  - OPTIC ATROPHY [None]
  - PAPILLOEDEMA [None]
  - PNEUMONIA PRIMARY ATYPICAL [None]
  - PSEUDOMONAS INFECTION [None]
  - PUPILLARY REFLEX IMPAIRED [None]
  - STAPHYLOCOCCAL INFECTION [None]
  - SUBARACHNOID HAEMORRHAGE [None]
  - UNRESPONSIVE TO STIMULI [None]
  - VISUAL ACUITY REDUCED [None]
